FAERS Safety Report 7714991-4 (Version None)
Quarter: 2011Q3

REPORT INFORMATION
  Report Type: 
  Country: None (occurrence: None)
  Receive Date: 20110829
  Receipt Date: 20110726
  Transmission Date: 20111222
  Serious: No
  Sender: FDA-Public Use
  Company Number: US-ASTRAZENECA-2011SE44798

PATIENT
  Sex: Female

DRUGS (1)
  1. VIMOVO [Suspect]
     Indication: ARTHRALGIA
     Dosage: 500/20 MG BID
     Route: 048
     Dates: start: 20110101, end: 20110101

REACTIONS (1)
  - DRY MOUTH [None]
